FAERS Safety Report 9520003 (Version 2)
Quarter: 2013Q3

REPORT INFORMATION
  Report Type: Spontaneous
  Country: MY (occurrence: MY)
  Receive Date: 20130912
  Receipt Date: 20130923
  Transmission Date: 20140515
  Serious: Yes (Death)
  Sender: FDA-Public Use
  Company Number: MY-NAPPMUNDI-GBR-2013-0015614

PATIENT
  Age: 62 Year
  Sex: Male

DRUGS (3)
  1. BUPRENORPHINE TRANSDERMAL SYSTEM 5 MG [Suspect]
     Indication: PROCEDURAL PAIN
     Dosage: 5 MCG, Q1H
     Route: 062
  2. BUPRENORPHINE TRANSDERMAL SYSTEM 5 MG [Suspect]
     Indication: OFF LABEL USE
  3. CALCIUM CHANNEL BLOCKERS [Concomitant]

REACTIONS (1)
  - Acute myocardial infarction [Fatal]
